FAERS Safety Report 5501838-X (Version None)
Quarter: 2007Q4

REPORT INFORMATION
  Report Type: 
  Country: None (occurrence: None)
  Receive Date: 20071030
  Receipt Date: 20070302
  Transmission Date: 20080405
  Serious: No
  Sender: FDA-Public Use
  Company Number: A0634940A

PATIENT
  Age: 54 Year
  Sex: Female

DRUGS (1)
  1. SEREVENT [Suspect]
     Indication: BRONCHITIS
     Route: 055
     Dates: start: 20061130, end: 20061230

REACTIONS (2)
  - DRUG INEFFECTIVE [None]
  - PHARMACEUTICAL PRODUCT COMPLAINT [None]
